FAERS Safety Report 7820572-4 (Version None)
Quarter: 2011Q4

REPORT INFORMATION
  Report Type: 
  Country: None (occurrence: None)
  Receive Date: 20111018
  Receipt Date: 20111013
  Transmission Date: 20120403
  Serious: Yes (Death, Hospitalization)
  Sender: FDA-Public Use
  Company Number: PHHO2011US16791

PATIENT
  Sex: Male
  Weight: 113 kg

DRUGS (1)
  1. ZORTRESS [Suspect]
     Indication: ORGAN TRANSPLANT
     Dosage: 0.75 MG, BID
     Route: 048
     Dates: start: 20060829, end: 20111001

REACTIONS (3)
  - CARDIAC ARREST [None]
  - ARRHYTHMIA [None]
  - CARDIAC FAILURE CONGESTIVE [None]
